APPROVED DRUG PRODUCT: BROMFENAC SODIUM
Active Ingredient: BROMFENAC SODIUM
Strength: EQ 0.09% ACID
Dosage Form/Route: SOLUTION/DROPS;OPHTHALMIC
Application: A201941 | Product #001
Applicant: CHARTWELL RX SCIENCES LLC
Approved: Feb 10, 2015 | RLD: No | RS: No | Type: DISCN